FAERS Safety Report 5879483-6 (Version None)
Quarter: 2008Q3

REPORT INFORMATION
  Report Type: 
  Country: None (occurrence: None)
  Receive Date: 20080912
  Receipt Date: 20080829
  Transmission Date: 20090109
  Serious: Yes (Hospitalization)
  Sender: FDA-Public Use
  Company Number: FR-ELI_LILLY_AND_COMPANY-FR200809000020

PATIENT
  Age: 74 Year
  Sex: Female

DRUGS (5)
  1. FORTEO [Suspect]
     Indication: OSTEOPOROSIS
     Dosage: 20 UG, DAILY (1/D)
     Route: 065
     Dates: start: 20061214
  2. IRBESARTAN [Concomitant]
     Indication: HYPERTENSION
     Dosage: 1 D/F, DAILY (1/D)
     Route: 065
  3. AMLOD [Concomitant]
     Indication: HYPERTENSION
     Dosage: 1 D/F, EACH EVENING
     Route: 065
  4. PRAVASTATIN [Concomitant]
     Indication: HYPERCHOLESTEROLAEMIA
     Dosage: UNK, UNKNOWN
     Route: 065
  5. IMODIUM [Concomitant]
     Indication: FAECAL INCONTINENCE
     Dosage: UNK, UNKNOWN
     Route: 065

REACTIONS (2)
  - CARDIAC PACEMAKER INSERTION [None]
  - OEDEMA PERIPHERAL [None]
